FAERS Safety Report 7095559-2 (Version None)
Quarter: 2010Q4

REPORT INFORMATION
  Report Type: 
  Country: None (occurrence: None)
  Receive Date: 20101111
  Receipt Date: 20101103
  Transmission Date: 20110411
  Serious: Yes (Other)
  Sender: FDA-Public Use
  Company Number: CA-BAYER-201029963NA

PATIENT
  Age: 44 Year
  Sex: Female

DRUGS (1)
  1. MIRENA [Suspect]
     Indication: MENSTRUAL CYCLE MANAGEMENT
     Dosage: FREQUENCY: CONTINUOUS
     Route: 015
     Dates: start: 20060101

REACTIONS (2)
  - BREAST MASS [None]
  - BREAST PAIN [None]
